FAERS Safety Report 6495843-7 (Version None)
Quarter: 2009Q4

REPORT INFORMATION
  Report Type: 
  Country: None (occurrence: None)
  Receive Date: 20091214
  Receipt Date: 20090819
  Transmission Date: 20100525
  Serious: No
  Sender: FDA-Public Use
  Company Number: US-BRISTOL-MYERS SQUIBB COMPANY-14747828

PATIENT
  Age: 72 Year
  Sex: Female
  Weight: 109 kg

DRUGS (7)
  1. ABILIFY [Suspect]
     Indication: BIPOLAR DISORDER
     Dates: start: 20090302
  2. ABILIFY [Suspect]
     Indication: DEPRESSION
     Dates: start: 20090302
  3. IMURAN [Concomitant]
  4. PREDNISONE [Concomitant]
  5. METOPROLOL [Concomitant]
  6. ENALAPRIL [Concomitant]
  7. POTASSIUM [Concomitant]

REACTIONS (3)
  - GLUCOSE TOLERANCE IMPAIRED [None]
  - MUSCLE TIGHTNESS [None]
  - PAIN IN EXTREMITY [None]
